FAERS Safety Report 10148476 (Version 1)
Quarter: 2014Q2

REPORT INFORMATION
  Report Type: Spontaneous
  Country: US (occurrence: US)
  Receive Date: 20140501
  Receipt Date: 20140501
  Transmission Date: 20141212
  Serious: No
  Sender: FDA-Public Use
  Company Number: US-AMGEN-USASP2014028784

PATIENT
  Age: 68 Year
  Sex: Male

DRUGS (12)
  1. ENBREL [Suspect]
     Indication: PRODUCT USED FOR UNKNOWN INDICATION
     Dosage: 50 MG, QWK
     Route: 065
     Dates: start: 20140416
  2. HYDROCODONE [Concomitant]
     Dosage: 10/325 ONE FOUR TIME PER DAY AS NEED
  3. HUMALOG [Concomitant]
     Dosage: 80 UNITS DAILY
  4. ARAVA [Concomitant]
     Dosage: 20MG ONCE DAILY
  5. AZELASTINE [Concomitant]
     Dosage: 2 SPRAYS PER DONE
  6. PREDNISONE [Concomitant]
     Dosage: 5MG IN THE MORNING AND 4MG IN THE EVENING
  7. JALYN [Concomitant]
     Dosage: 0.5/0.4MG ONCE DAILY
  8. CYMBALTA [Concomitant]
     Dosage: 60MG ONCE DIALY
  9. LORATADINE [Concomitant]
     Dosage: 150MG TWICE DIALY
  10. ROBAXIN [Concomitant]
     Dosage: 750MG THREE TIMES A DAY
  11. MIRAPEX [Concomitant]
     Dosage: 2MG AT BEDTIME
  12. VYTORIN [Concomitant]
     Dosage: 10/20MG ONCE DAILY

REACTIONS (3)
  - Breast induration [Unknown]
  - Gait disturbance [Unknown]
  - Back disorder [Unknown]
